FAERS Safety Report 16749371 (Version 1)
Quarter: 2019Q3

REPORT INFORMATION
  Report Type: Spontaneous
  Country: FR (occurrence: FR)
  Receive Date: 20190828
  Receipt Date: 20190828
  Transmission Date: 20191005
  Serious: Yes (Hospitalization)
  Sender: FDA-Public Use
  Company Number: FR-BEH-2019106280

PATIENT
  Age: 13 Year
  Sex: Male
  Weight: 58 kg

DRUGS (1)
  1. PRIVIGEN [Suspect]
     Active Substance: HUMAN IMMUNOGLOBULIN G
     Indication: NEPHROTIC SYNDROME
     Dosage: 50 GRAM, QD
     Route: 042
     Dates: start: 20190702, end: 20190703

REACTIONS (3)
  - Meningitis aseptic [Recovered/Resolved]
  - Product use in unapproved indication [Unknown]
  - No adverse event [Unknown]

NARRATIVE: CASE EVENT DATE: 20190703
